FAERS Safety Report 5975525-8 (Version None)
Quarter: 2008Q4

REPORT INFORMATION
  Report Type: 
  Country: None (occurrence: None)
  Receive Date: 20081202
  Receipt Date: 20080623
  Transmission Date: 20090506
  Serious: Yes (Hospitalization)
  Sender: FDA-Public Use
  Company Number: A0734337A

PATIENT
  Age: 43 Year
  Sex: Male

DRUGS (3)
  1. AUGMENTIN '125' [Suspect]
     Route: 048
     Dates: start: 20060101, end: 20060101
  2. HIV ANTIVIRAL AGENTS UNSPECIFIED [Concomitant]
  3. BACTRIM (SULFAMETHAXAZOLE, TRIMETHOPRIME) [Concomitant]

REACTIONS (3)
  - HYPERSENSITIVITY [None]
  - PYREXIA [None]
  - URTICARIA [None]
